FAERS Safety Report 9632569 (Version 4)
Quarter: 2013Q4

REPORT INFORMATION
  Report Type: Report from Study
  Country: US (occurrence: US)
  Receive Date: 20131018
  Receipt Date: 20131209
  Transmission Date: 20140711
  Serious: Yes (Hospitalization)
  Sender: FDA-Public Use
  Company Number: US-ALEXION PHARMACEUTICALS INC.-A201302681

PATIENT
  Age: 35 Year
  Sex: Female

DRUGS (1)
  1. SOLIRIS [Suspect]
     Indication: HAEMOLYTIC URAEMIC SYNDROME
     Dosage: 1200 MG, Q2W
     Route: 042

REACTIONS (9)
  - Cholecystitis [Unknown]
  - Renal failure [Unknown]
  - Bacteraemia [Unknown]
  - Haemoglobin decreased [Unknown]
  - Cellulitis [Recovered/Resolved]
  - Dyspnoea [Unknown]
  - Platelet count decreased [Not Recovered/Not Resolved]
  - Central venous catheterisation [Unknown]
  - Haemolysis [Not Recovered/Not Resolved]
